FAERS Safety Report 16325523 (Version 2)
Quarter: 2023Q1

REPORT INFORMATION
  Report Type: Spontaneous
  Country: US (occurrence: US)
  Receive Date: 20190517
  Receipt Date: 20230116
  Transmission Date: 20230418
  Serious: Yes (Disabling, Other)
  Sender: FDA-Public Use
  Company Number: US-TEVA-2019-US-1050072

PATIENT
  Age: 44 Year
  Sex: Female
  Weight: 58.96 kg

DRUGS (30)
  1. DOCETAXEL [Suspect]
     Active Substance: DOCETAXEL
     Indication: Breast cancer female
     Dosage: 06 CYCLES(27-FEB-2013,07-MAR-2013,10-APR-2013,01-MAY-2013,22-MAY-2013,11-JUN-2013) EVERY THREE WEEKS
     Route: 042
     Dates: start: 20130227, end: 20130611
  2. CARBOPLATIN [Suspect]
     Active Substance: CARBOPLATIN
     Indication: Breast cancer female
     Dosage: 06 CYCLES(27-FEB-2013,07-MAR-2013,10-APR-2013,01-MAY-2013,22-MAY-2013,11-JUN-2013) EVERY THREE WEEKS
     Route: 042
     Dates: start: 20130227, end: 20130611
  3. DOCETAXEL [Suspect]
     Active Substance: DOCETAXEL
     Indication: Breast cancer female
     Dosage: 06 CYCLES(27-FEB-2013,07-MAR-2013,10-APR-2013,01-MAY-2013,22-MAY-2013,11-JUN-2013) EVERY THREE WEEKS
     Route: 042
     Dates: start: 20130227, end: 20130611
  4. DOCETAXEL [Suspect]
     Active Substance: DOCETAXEL
     Dosage: 06 CYCLES(27-FEB-2013,07-MAR-2013,10-APR-2013,01-MAY-2013,22-MAY-2013,11-JUN-2013) EVERY THREE WEEKS
     Route: 042
     Dates: start: 20130227, end: 20130611
  5. DOCETAXEL [Suspect]
     Active Substance: DOCETAXEL
     Dosage: 06 CYCLES(27-FEB-2013,07-MAR-2013,10-APR-2013,01-MAY-2013,22-MAY-2013,11-JUN-2013) EVERY THREE WEEKS
     Route: 042
     Dates: start: 20130227, end: 20130611
  6. DOCETAXEL [Suspect]
     Active Substance: DOCETAXEL
     Indication: Breast cancer female
     Dosage: 06 CYCLES(27-FEB-2013,07-MAR-2013,10-APR-2013,01-MAY-2013,22-MAY-2013,11-JUN-2013) EVERY THREE WEEKS
     Route: 042
     Dates: start: 20130227, end: 20130611
  7. HERCEPTIN [Suspect]
     Active Substance: TRASTUZUMAB
     Indication: Breast cancer female
     Route: 042
     Dates: start: 20130227, end: 20140219
  8. NEULASTA [Suspect]
     Active Substance: PEGFILGRASTIM
     Indication: Breast cancer female
     Dosage: RIGHT UPPER ARM
     Route: 058
     Dates: start: 20130228
  9. NEULASTA [Suspect]
     Active Substance: PEGFILGRASTIM
     Dosage: RIGHT UPPER ARM
     Route: 058
     Dates: start: 20130321
  10. NEULASTA [Suspect]
     Active Substance: PEGFILGRASTIM
     Dosage: RIGHT UPPER ARM
     Route: 058
     Dates: start: 20130411
  11. NEULASTA [Suspect]
     Active Substance: PEGFILGRASTIM
     Dosage: RIGHT UPPER ARM
     Route: 058
     Dates: start: 20130502
  12. NEULASTA [Suspect]
     Active Substance: PEGFILGRASTIM
     Dosage: RIGHT UPPER ARM
     Route: 058
     Dates: start: 20130523
  13. NEULASTA [Suspect]
     Active Substance: PEGFILGRASTIM
     Dosage: RIGHT UPPER ARM
     Route: 058
     Dates: start: 20130612
  14. VITAMIN D3 [Concomitant]
     Active Substance: CHOLECALCIFEROL
     Indication: Product used for unknown indication
     Dosage: 1000 IU (INTERNATIONAL UNIT) DAILY;
     Route: 048
     Dates: start: 2013
  15. TAMOXIFEN [Concomitant]
     Active Substance: TAMOXIFEN
     Indication: Cancer hormonal therapy
     Dosage: 40 MILLIGRAM DAILY;
     Route: 048
     Dates: start: 20131013, end: 2014
  16. TAMOXIFEN [Concomitant]
     Active Substance: TAMOXIFEN
     Route: 065
     Dates: start: 201510
  17. EFFEXOR [Concomitant]
     Active Substance: VENLAFAXINE HYDROCHLORIDE
     Indication: Product used for unknown indication
     Route: 065
     Dates: start: 201510
  18. NEURONTIN [Concomitant]
     Active Substance: GABAPENTIN
     Indication: Product used for unknown indication
     Dosage: 200 MILLIGRAM DAILY; THREE TIMES DAILY COMPLIANCE: STILL TAKING,NOT AS PRESCRIBED TAKES 5-6 CAPSULES
     Route: 065
     Dates: start: 2006
  19. MELATONIN [Concomitant]
     Active Substance: MELATONIN
     Indication: Product used for unknown indication
     Route: 065
     Dates: start: 2006
  20. MAGNESIUM [Concomitant]
     Active Substance: MAGNESIUM
     Indication: Restless legs syndrome
     Route: 048
     Dates: start: 2013
  21. GLUCOSAMINE [Concomitant]
     Active Substance: GLUCOSAMINE
     Indication: Product used for unknown indication
     Route: 065
     Dates: start: 2013
  22. VITAMIN B [Concomitant]
     Active Substance: VITAMIN B
     Indication: Product used for unknown indication
     Dates: start: 2013
  23. VITAMIN C [Concomitant]
     Active Substance: ASCORBIC ACID
     Indication: Product used for unknown indication
     Dates: start: 2013
  24. CALCIUM [Concomitant]
     Active Substance: CALCIUM
     Indication: Product used for unknown indication
     Dates: start: 2013
  25. OMEPRAZOLE [Concomitant]
     Active Substance: OMEPRAZOLE
     Indication: Product used for unknown indication
     Dosage: AS NEEDED (ONLY DURING 1ST 2 ROUNDS OF CHEMO
     Route: 065
  26. DEXAMETHASONE [Concomitant]
     Active Substance: DEXAMETHASONE
     Indication: Product used for unknown indication
     Route: 065
  27. TRAZODONE [Concomitant]
     Active Substance: TRAZODONE HYDROCHLORIDE
     Indication: Product used for unknown indication
     Dosage: 200 MILLIGRAM DAILY; AT BED TIME
     Route: 048
  28. ASPIRIN [Concomitant]
     Active Substance: ASPIRIN
     Indication: Product used for unknown indication
     Dosage: 81 MILLIGRAM DAILY;
     Route: 048
  29. BIOTIN [Concomitant]
     Active Substance: BIOTIN
     Indication: Product used for unknown indication
     Dosage: 10 MILLIGRAM DAILY;
     Route: 048
  30. IBUPROFEN [Concomitant]
     Active Substance: IBUPROFEN
     Indication: Pain
     Dosage: 800 MILLIGRAM DAILY;
     Route: 048

REACTIONS (22)
  - Alopecia areata [Not Recovered/Not Resolved]
  - Madarosis [Not Recovered/Not Resolved]
  - Neuropathy peripheral [Unknown]
  - Pancytopenia [Unknown]
  - Hair texture abnormal [Not Recovered/Not Resolved]
  - Hair colour changes [Not Recovered/Not Resolved]
  - Fatigue [Recovering/Resolving]
  - Bone pain [Unknown]
  - Decreased appetite [Unknown]
  - Migraine [Recovering/Resolving]
  - Nausea [Recovered/Resolved]
  - Dysgeusia [Unknown]
  - Malaise [Recovering/Resolving]
  - Insomnia [Unknown]
  - Myalgia [Unknown]
  - Arthralgia [Recovering/Resolving]
  - Lacrimation increased [Recovering/Resolving]
  - Oral pain [Recovering/Resolving]
  - Malaise [Not Recovered/Not Resolved]
  - Vomiting [Unknown]
  - Onychomadesis [Unknown]
  - Periorbital swelling [Unknown]

NARRATIVE: CASE EVENT DATE: 20130101
